FAERS Safety Report 8560843-X (Version None)
Quarter: 2012Q3

REPORT INFORMATION
  Report Type: 
  Country: None (occurrence: None)
  Receive Date: 20120727
  Receipt Date: 20120727
  Transmission Date: 20120928
  Serious: Yes (Hospitalization)
  Sender: FDA-Public Use
  Company Number: None

PATIENT
  Age: 84 Year
  Sex: Female
  Weight: 64 kg

DRUGS (20)
  1. LOROTHYROXINE [Concomitant]
  2. ALDACTONE [Concomitant]
  3. HCTZ/LOSARTAN [Concomitant]
  4. LORASTATIN [Concomitant]
  5. BONIVA [Suspect]
     Indication: OSTEOPOROSIS
     Dosage: 150MG Q MONTH ON 19TH PO CHRONIC
     Route: 048
  6. MIRALAX [Concomitant]
  7. COUMADIN [Concomitant]
  8. FERROUS SULFATE TAB [Concomitant]
  9. VITAMIN D [Concomitant]
  10. COMTORVENT [Concomitant]
  11. COMDINA [Concomitant]
  12. PLAVIX [Concomitant]
  13. ROXICADONE [Concomitant]
  14. SERTRALINE [Concomitant]
  15. NITROGLYCERIN [Concomitant]
  16. TEKTRARVAN [Concomitant]
  17. LABERTOLOL [Concomitant]
  18. PROTEASE [Concomitant]
  19. MIRAPROL [Concomitant]
  20. M.V.I. [Concomitant]

REACTIONS (2)
  - FALL [None]
  - FEMUR FRACTURE [None]
